FAERS Safety Report 7353658-1 (Version None)
Quarter: 2011Q1

REPORT INFORMATION
  Report Type: 
  Country: None (occurrence: None)
  Receive Date: 20110303
  Receipt Date: 20101201
  Transmission Date: 20110831
  Serious: Yes (Hospitalization)
  Sender: FDA-Public Use
  Company Number: US-005620

PATIENT
  Sex: Female

DRUGS (2)
  1. ISOVUE-250 [Suspect]
     Indication: PERIPHERAL VASCULAR DISORDER
     Dosage: 16ML INTRA-ARTERIAL
     Route: 013
     Dates: start: 20101201, end: 20101201
  2. BENADRYL [Concomitant]

REACTIONS (1)
  - ANAPHYLACTIC REACTION [None]
